FAERS Safety Report 6636038-3 (Version None)
Quarter: 2010Q1

REPORT INFORMATION
  Report Type: 
  Country: None (occurrence: None)
  Receive Date: 20100316
  Receipt Date: 20100304
  Transmission Date: 20100710
  Serious: Yes (Other)
  Sender: FDA-Public Use
  Company Number: PHHY2010JP01931

PATIENT
  Age: 9 Year
  Sex: Female
  Weight: 63 kg

DRUGS (8)
  1. SANDOSTATIN LAR [Suspect]
     Indication: PITUITARY TUMOUR BENIGN
     Dosage: 20 MG EVERY 28 DAYS
     Route: 030
  2. SOMAVERT [Suspect]
     Indication: PITUITARY TUMOUR BENIGN
     Dosage: 10MG DAILY
     Route: 058
  3. SOMAVERT [Suspect]
     Dosage: 15MG DAILY
     Route: 058
  4. SOMAVERT [Suspect]
     Dosage: 20 MG DAILY
     Route: 058
     Dates: start: 20080901, end: 20090101
  5. POLYETHYLENE GLYCOL [Concomitant]
     Indication: PITUITARY TUMOUR BENIGN
     Dosage: 10 MG/DAY
     Route: 058
  6. POLYETHYLENE GLYCOL [Concomitant]
     Dosage: 20 MG/DAY
     Route: 058
  7. POLYETHYLENE GLYCOL [Concomitant]
     Dosage: UNK
  8. POLYETHYLENE GLYCOL [Concomitant]
     Dosage: 40 MG/WEEK
     Route: 058

REACTIONS (4)
  - ALANINE AMINOTRANSFERASE INCREASED [None]
  - ASPARTATE AMINOTRANSFERASE INCREASED [None]
  - HEPATIC FUNCTION ABNORMAL [None]
  - PITUITARY TUMOUR REMOVAL [None]
